FAERS Safety Report 8979198 (Version 4)
Quarter: 2013Q1

REPORT INFORMATION
  Report Type: Spontaneous
  Country: US (occurrence: US)
  Receive Date: 20121221
  Receipt Date: 20130226
  Transmission Date: 20140127
  Serious: Yes (Other)
  Sender: FDA-Public Use
  Company Number: US-PFIZER INC-2012323823

PATIENT
  Age: 62 Year
  Sex: Female

DRUGS (1)
  1. LYRICA [Suspect]
     Indication: ARTHRALGIA
     Dosage: 150 MG, 2X/DAY
     Route: 048

REACTIONS (3)
  - Fall [Unknown]
  - Back injury [Unknown]
  - Fracture [Unknown]
